FAERS Safety Report 10256040 (Version 1)
Quarter: 2014Q2

REPORT INFORMATION
  Report Type: Spontaneous
  Country: US (occurrence: US)
  Receive Date: 20140624
  Receipt Date: 20140624
  Transmission Date: 20141212
  Serious: No
  Sender: FDA-Public Use
  Company Number: US-ZOGENIX, INC.-2012ZX000057

PATIENT
  Age: 36 Year
  Sex: Female
  Weight: 74.91 kg

DRUGS (3)
  1. SUMAVEL DOSEPRO [Suspect]
     Indication: MIGRAINE
  2. MAXALT [Concomitant]
     Indication: MIGRAINE
  3. TOPAMAX [Concomitant]
     Indication: MIGRAINE

REACTIONS (3)
  - Neck pain [Recovered/Resolved]
  - Pain in jaw [Recovered/Resolved]
  - Muscle tightness [Recovered/Resolved]
